FAERS Safety Report 5310368-X (Version None)
Quarter: 2007Q2

REPORT INFORMATION
  Report Type: 
  Country: None (occurrence: None)
  Receive Date: 20070427
  Receipt Date: 20070416
  Transmission Date: 20071010
  Serious: Yes (Other)
  Sender: FDA-Public Use
  Company Number: IE-PFIZER INC-2007010160

PATIENT
  Age: 67 Year
  Sex: Male

DRUGS (13)
  1. LYRICA [Suspect]
     Indication: NEURALGIA
     Route: 048
     Dates: start: 20060829, end: 20061002
  2. OXYCONTIN [Concomitant]
     Indication: NEOPLASM
  3. OXYNORM [Concomitant]
     Indication: NEOPLASM
  4. AMITRIPTYLINE HCL [Concomitant]
  5. TRITACE [Concomitant]
     Dosage: DAILY DOSE:2.5MG
  6. ELTROXIN [Concomitant]
     Dosage: DAILY DOSE:50MG
  7. NEXIUM [Concomitant]
     Dosage: DAILY DOSE:40MG
  8. DUPHALAC [Concomitant]
  9. LIPITOR [Concomitant]
  10. LORAZEPAM [Concomitant]
     Dosage: DAILY DOSE:.5MG
  11. STEMETIL ^AVENTIS PHARMA^ [Concomitant]
  12. RITALIN [Concomitant]
     Dosage: DAILY DOSE:5MG
  13. ACETAMINOPHEN W/ CODEINE [Concomitant]

REACTIONS (8)
  - CONFUSIONAL STATE [None]
  - DISTURBANCE IN ATTENTION [None]
  - DRUG TOXICITY [None]
  - FEELING ABNORMAL [None]
  - HALLUCINATION [None]
  - ILLUSION [None]
  - MYOCLONUS [None]
  - NIGHTMARE [None]
